FAERS Safety Report 7969178-7 (Version None)
Quarter: 2011Q4

REPORT INFORMATION
  Report Type: 
  Country: None (occurrence: None)
  Receive Date: 20111209
  Receipt Date: 20111207
  Transmission Date: 20120403
  Serious: Yes (Hospitalization)
  Sender: FDA-Public Use
  Company Number: JP-PFIZER INC-2011295497

PATIENT
  Age: 64 Year
  Sex: Female

DRUGS (6)
  1. BEZATOL - SLOW RELEASE [Concomitant]
     Dosage: 100 MG, 1X/DAY
     Route: 048
  2. RISEDRONATE SODIUM [Concomitant]
     Dosage: 17.5 MG, 1X/DAY
     Route: 048
  3. MEDROL [Suspect]
     Dosage: 2 MG, 1X/DAY
     Route: 048
     Dates: start: 20110513
  4. ACTARIT [Concomitant]
     Dosage: 300 MG, 2X/WEEK
     Route: 048
  5. LIPITOR [Concomitant]
     Dosage: 5 MG, 1X/DAY
     Route: 048
  6. ALLOPURINOL [Concomitant]
     Dosage: 200 MG, UNK
     Route: 048

REACTIONS (1)
  - ANAPHYLACTIC SHOCK [None]
